FAERS Safety Report 7483734-4 (Version None)
Quarter: 2011Q2

REPORT INFORMATION
  Report Type: 
  Country: None (occurrence: None)
  Receive Date: 20110517
  Receipt Date: 20110504
  Transmission Date: 20111010
  Serious: Yes (Other)
  Sender: FDA-Public Use
  Company Number: PHHY2010DE74429

PATIENT
  Sex: Female

DRUGS (4)
  1. ISOTRETINOIN [Suspect]
     Dosage: 20 MG, QD
     Route: 048
     Dates: start: 20100628
  2. EUTHYROX [Concomitant]
     Dosage: 75MICROGRAM, QD
     Route: 048
     Dates: start: 20100406
  3. SANDOSTATIN LAR [Suspect]
     Indication: PITUITARY TUMOUR BENIGN
     Dosage: 10 MG, QMO
     Route: 030
     Dates: start: 20100413
  4. RASILEZ [Suspect]
     Dosage: 150 MG, QD
     Route: 048
     Dates: start: 20071221

REACTIONS (5)
  - ALOPECIA [None]
  - PRURITUS [None]
  - RASH PUSTULAR [None]
  - ERYTHEMA [None]
  - ALLERGY TO METALS [None]
